FAERS Safety Report 8548086-7 (Version None)
Quarter: 2012Q3

REPORT INFORMATION
  Report Type: 
  Country: None (occurrence: None)
  Receive Date: 20120730
  Receipt Date: 20120716
  Transmission Date: 20120928
  Serious: Yes (Hospitalization)
  Sender: FDA-Public Use
  Company Number: SE-AMGEN-SWESP2010006894

PATIENT
  Age: 58 Year
  Sex: Female

DRUGS (7)
  1. IBUPROFEN [Concomitant]
     Dosage: 600 MG, UNK
  2. METHOTREXATE [Concomitant]
     Dosage: 2.5 MG, UNK
  3. LASIX-R [Concomitant]
     Dosage: 30 MG, UNK
  4. ETANERCEPT [Suspect]
     Indication: RHEUMATOID ARTHRITIS
     Dosage: 50 MG, QWK
     Route: 058
     Dates: start: 20051120, end: 20070208
  5. NEXIUM                             /01479303/ [Concomitant]
     Dosage: 20 MG, UNK
  6. LIVIAL [Concomitant]
     Dosage: 2.5 MG, UNK
  7. LOSARTAN POTASSIUM AND HYDROCHLOROTHIAZIDE [Concomitant]
     Dosage: [HYDROCHLOROTHIAZIDE 50MG]/[LOSARTAN POTASSIUM 12.5 MG]

REACTIONS (1)
  - NERVOUS SYSTEM DISORDER [None]
